FAERS Safety Report 10277131 (Version 1)
Quarter: 2014Q3

REPORT INFORMATION
  Report Type: Report from Study
  Country: BR (occurrence: BR)
  Receive Date: 20140703
  Receipt Date: 20140703
  Transmission Date: 20150326
  Serious: Yes (Hospitalization, Other)
  Sender: FDA-Public Use
  Company Number: BR-BAYER-2014-097566

PATIENT
  Age: 33 Year
  Sex: Female

DRUGS (7)
  1. PROPANOLOL [Concomitant]
     Active Substance: PROPRANOLOL HYDROCHLORIDE
     Indication: MIGRAINE
     Dosage: 20 MG, BID
     Route: 048
     Dates: start: 201402
  2. MANTADAN [Concomitant]
     Indication: FATIGUE
     Dosage: 200 MG, BID
     Route: 048
     Dates: start: 2013
  3. ATENOLOL. [Concomitant]
     Active Substance: ATENOLOL
     Indication: HYPERTENSION
     Dosage: 25 MG, QD
     Route: 048
     Dates: start: 2010, end: 201402
  4. MANTADAN [Concomitant]
     Indication: ASTHENIA
  5. MANTADAN [Concomitant]
     Indication: BALANCE DISORDER
  6. BETAFERON [Suspect]
     Active Substance: INTERFERON BETA-1B
     Indication: RELAPSING-REMITTING MULTIPLE SCLEROSIS
     Dosage: 1 ML, QOD
     Route: 058
  7. MANTADAN [Concomitant]
     Indication: FATIGUE

REACTIONS (21)
  - Injection site mass [Not Recovered/Not Resolved]
  - Amnesia [Not Recovered/Not Resolved]
  - Pneumonia [Recovered/Resolved]
  - Depression [Recovered/Resolved]
  - Ophthalmoplegia [Recovered/Resolved]
  - VIIth nerve paralysis [Recovered/Resolved]
  - Lung infiltration [Recovered/Resolved]
  - Productive cough [Not Recovered/Not Resolved]
  - Chills [Recovered/Resolved]
  - Injection site pruritus [Not Recovered/Not Resolved]
  - Back pain [Recovered/Resolved]
  - Hypoaesthesia oral [Recovered/Resolved]
  - Rash maculo-papular [Not Recovered/Not Resolved]
  - Multiple sclerosis relapse [Recovered/Resolved]
  - Injection site erythema [Not Recovered/Not Resolved]
  - Nasopharyngitis [Not Recovered/Not Resolved]
  - Migraine [Not Recovered/Not Resolved]
  - Injection site pain [Not Recovered/Not Resolved]
  - Hypoaesthesia [Recovered/Resolved]
  - Vitamin D deficiency [None]
  - Diplopia [Recovered/Resolved]

NARRATIVE: CASE EVENT DATE: 201209
